FAERS Safety Report 23175304 (Version 1)
Quarter: 2023Q4

REPORT INFORMATION
  Report Type: Spontaneous
  Country: CN (occurrence: CN)
  Receive Date: 20231113
  Receipt Date: 20231113
  Transmission Date: 20240109
  Serious: Yes (Other)
  Sender: FDA-Public Use
  Company Number: None

PATIENT
  Age: 41 Year
  Sex: Male
  Weight: 60 kg

DRUGS (7)
  1. IFOSFAMIDE [Suspect]
     Active Substance: IFOSFAMIDE
     Indication: Non-Hodgkin^s lymphoma
     Dosage: 2 G, ONE TIME IN ONE DAY
     Route: 041
     Dates: start: 20190918, end: 20190922
  2. IFOSFAMIDE [Suspect]
     Active Substance: IFOSFAMIDE
     Indication: Chemotherapy
  3. DEXTROSE [Suspect]
     Active Substance: DEXTROSE\DEXTROSE MONOHYDRATE
     Indication: Medication dilution
     Dosage: 250 ML, INJECTION, ONE TIME IN ONE DAY, USED TO DILUTE CARBOPLATIN (600 MG)
     Route: 041
     Dates: start: 20190919, end: 20190919
  4. ETOPOSIDE [Suspect]
     Active Substance: ETOPOSIDE
     Indication: Non-Hodgkin^s lymphoma
     Dosage: 0.15 G, ONE TIME IN ONE DAY
     Route: 041
     Dates: start: 20190918, end: 20190920
  5. ETOPOSIDE [Suspect]
     Active Substance: ETOPOSIDE
     Indication: Chemotherapy
  6. CARBOPLATIN [Suspect]
     Active Substance: CARBOPLATIN
     Indication: Non-Hodgkin^s lymphoma
     Dosage: 0.6 G, ONE TIME IN ONE DAY, DILUTED WITH GLUCOSE INJECTION (250 ML)
     Route: 041
     Dates: start: 20190919, end: 20190919
  7. CARBOPLATIN [Suspect]
     Active Substance: CARBOPLATIN
     Indication: Chemotherapy

REACTIONS (4)
  - Gastrointestinal disorder [Recovered/Resolved]
  - Nausea [Recovered/Resolved]
  - Vomiting [Recovered/Resolved]
  - Decreased appetite [Recovering/Resolving]

NARRATIVE: CASE EVENT DATE: 20190919
